FAERS Safety Report 9778003 (Version 1)
Quarter: 2013Q4

REPORT INFORMATION
  Report Type: Spontaneous
  Country: IT (occurrence: IT)
  Receive Date: 20131223
  Receipt Date: 20131223
  Transmission Date: 20140711
  Serious: Yes (Hospitalization)
  Sender: FDA-Public Use
  Company Number: IT-TEVA-451205ISR

PATIENT
  Age: 29 Year
  Sex: Female

DRUGS (2)
  1. PAROXETINE [Suspect]
     Indication: INTENTIONAL SELF-INJURY
     Dosage: 400 MG TOTAL
     Route: 048
     Dates: start: 20130921, end: 20130921
  2. PIMOZIDE [Suspect]
     Indication: INTENTIONAL SELF-INJURY
     Dosage: 8 DF TOTAL
     Route: 048
     Dates: start: 20130921, end: 20130921

REACTIONS (5)
  - Confusional state [Unknown]
  - Hyporeflexia [Unknown]
  - Intentional self-injury [Unknown]
  - Mydriasis [Unknown]
  - Drug abuse [Unknown]
